FAERS Safety Report 17966770 (Version 1)
Quarter: 2020Q3

REPORT INFORMATION
  Report Type: Report from Study
  Country: US (occurrence: US)
  Receive Date: 20200701
  Receipt Date: 20200701
  Transmission Date: 20201103
  Serious: Yes (Hospitalization)
  Sender: FDA-Public Use
  Company Number: US-GILEAD-2020-0477791

PATIENT
  Age: 41 Year
  Sex: Male

DRUGS (11)
  1. VITAMIN E [DL?ALPHA TOCOPHERYL ACETATE] [Concomitant]
  2. VITAMIN A [COLECALCIFEROL;RETINOL] [Concomitant]
     Active Substance: CHOLECALCIFEROL\RETINOL
  3. AZITHROMYCIN ANHYDROUS. [Concomitant]
     Active Substance: AZITHROMYCIN ANHYDROUS
  4. ADVAIR HFA [Concomitant]
     Active Substance: FLUTICASONE PROPIONATE\SALMETEROL XINAFOATE
  5. SODIUM CHLORIDE. [Concomitant]
     Active Substance: SODIUM CHLORIDE
  6. AZTREONAM LYSINE [Suspect]
     Active Substance: AZTREONAM LYSINE
     Indication: CYSTIC FIBROSIS LUNG
     Dosage: 1  VIAL BY ALTERA NEBULIZER THREE TIMES DAILY FOR 28 DAYS EVERY OTHER MONTH
     Route: 055
  7. PULMOZYME [Concomitant]
     Active Substance: DORNASE ALFA
  8. PANCREAZE [AMYLASE;LIPASE;PROTEASE NOS] [Concomitant]
  9. ORKAMBI [Concomitant]
     Active Substance: IVACAFTOR\LUMACAFTOR
  10. PROAIR [FLUTICASONE PROPIONATE] [Concomitant]
     Active Substance: FLUTICASONE PROPIONATE
  11. VITAMIN D [COLECALCIFEROL] [Concomitant]
     Active Substance: CHOLECALCIFEROL

REACTIONS (1)
  - Polyp [Not Recovered/Not Resolved]

NARRATIVE: CASE EVENT DATE: 20200629
